FAERS Safety Report 7520893-9 (Version None)
Quarter: 2011Q2

REPORT INFORMATION
  Report Type: 
  Country: None (occurrence: None)
  Receive Date: 20110603
  Receipt Date: 20101123
  Transmission Date: 20111010
  Serious: Yes (Death)
  Sender: FDA-Public Use
  Company Number: US-BAYER-201036577NA

PATIENT
  Age: 62 Year
  Sex: Male

DRUGS (1)
  1. SORAFENIB (RAF KINASE INHIBITOR) [Suspect]
     Indication: HEPATIC NEOPLASM MALIGNANT
     Dosage: 400 MG, BID
     Dates: start: 20100921, end: 20101115

REACTIONS (4)
  - DEATH [None]
  - SKIN DISCOLOURATION [None]
  - FATIGUE [None]
  - HYPOGEUSIA [None]
